FAERS Safety Report 17075372 (Version 3)
Quarter: 2020Q1

REPORT INFORMATION
  Report Type: Spontaneous
  Country: US (occurrence: US)
  Receive Date: 20191126
  Receipt Date: 20200102
  Transmission Date: 20200409
  Serious: Yes (Other)
  Sender: FDA-Public Use
  Company Number: US-PFIZER INC-2019506637

PATIENT
  Age: 71 Year
  Sex: Male

DRUGS (1)
  1. XELJANZ [Suspect]
     Active Substance: TOFACITINIB CITRATE
     Dosage: 5 MG, UNK
     Dates: start: 201908

REACTIONS (9)
  - Fatigue [Unknown]
  - Cardiac disorder [Unknown]
  - Pain [Unknown]
  - Dizziness [Unknown]
  - Renal disorder [Unknown]
  - Tinnitus [Unknown]
  - Headache [Unknown]
  - Fall [Unknown]
  - Tremor [Unknown]
